FAERS Safety Report 23230941 (Version 1)
Quarter: 2023Q4

REPORT INFORMATION
  Report Type: Spontaneous
  Country: US (occurrence: US)
  Receive Date: 20231127
  Receipt Date: 20231127
  Transmission Date: 20240110
  Serious: Yes (Other)
  Sender: FDA-Public Use
  Company Number: US-BRISTOL-MYERS SQUIBB COMPANY-2023-167751

PATIENT
  Age: 76 Year
  Sex: Female

DRUGS (1)
  1. LENALIDOMIDE [Suspect]
     Active Substance: LENALIDOMIDE
     Indication: Plasma cell myeloma
     Dosage: TAKE 1 CAPSULE BY MOUTH EVERY DAY FOR 21 DAYS ON AND 7 DAYS OFF
     Route: 048
     Dates: start: 20221122

REACTIONS (2)
  - Gastrointestinal disorder [Recovered/Resolved]
  - Dysphagia [Recovered/Resolved]
